FAERS Safety Report 14956722 (Version 1)
Quarter: 2018Q2

REPORT INFORMATION
  Report Type: Spontaneous
  Country: US (occurrence: US)
  Receive Date: 20180531
  Receipt Date: 20180531
  Transmission Date: 20180711
  Serious: No
  Sender: FDA-Public Use
  Company Number: US-JNJFOC-20180512565

PATIENT

DRUGS (2)
  1. ZYRTEC [Suspect]
     Active Substance: CETIRIZINE HYDROCHLORIDE
     Route: 065
  2. ZYRTEC [Suspect]
     Active Substance: CETIRIZINE HYDROCHLORIDE
     Indication: ASTHMA
     Dosage: FOR 10 YEARS
     Route: 065

REACTIONS (6)
  - Pruritus [Unknown]
  - Product use in unapproved indication [Unknown]
  - Urticaria [Unknown]
  - Feeling abnormal [Unknown]
  - Off label use [Unknown]
  - Withdrawal syndrome [Unknown]
